FAERS Safety Report 9199945 (Version 2)
Quarter: 2013Q2

REPORT INFORMATION
  Report Type: Report from Study
  Country: US (occurrence: US)
  Receive Date: 20130329
  Receipt Date: 20130606
  Transmission Date: 20140414
  Serious: Yes (Other)
  Sender: FDA-Public Use
  Company Number: US-ABBOTT-13P-163-1066902-00

PATIENT
  Age: 22 Year
  Sex: Female
  Weight: 72.64 kg

DRUGS (4)
  1. LUPRON DEPOT [Suspect]
     Indication: ENDOMETRIOSIS
     Route: 030
     Dates: start: 200910, end: 201108
  2. LUPRON DEPOT [Suspect]
     Route: 030
     Dates: start: 201209
  3. MULTI-VITAMIN [Concomitant]
     Indication: PRODUCT USED FOR UNKNOWN INDICATION
     Dosage: DAILY
  4. CALCIUM [Concomitant]
     Indication: PRODUCT USED FOR UNKNOWN INDICATION
     Route: 048

REACTIONS (11)
  - Wrist fracture [Unknown]
  - Menorrhagia [Unknown]
  - Hot flush [Recovered/Resolved]
  - Endometriosis [Unknown]
  - Hot flush [Not Recovered/Not Resolved]
  - Weight increased [Unknown]
  - Weight increased [Unknown]
  - Endometriosis [Not Recovered/Not Resolved]
  - Menorrhagia [Recovered/Resolved]
  - Dysmenorrhoea [Recovered/Resolved]
  - Dysmenorrhoea [Not Recovered/Not Resolved]
